FAERS Safety Report 15312026 (Version 1)
Quarter: 2018Q4

REPORT INFORMATION
  Report Type: Spontaneous
  Country: None (occurrence: US)
  Receive Date: 20180823
  Receipt Date: 20180823
  Transmission Date: 20190204
  Serious: No
  Sender: FDA-Public Use
  Company Number: US-TAIHO ONCOLOGY  INC-EU-2018-01198

PATIENT
  Age: 49 Year
  Sex: Male

DRUGS (1)
  1. LONSURF [Suspect]
     Active Substance: TIPIRACIL HYDROCHLORIDE\TRIFLURIDINE
     Indication: METASTASIS
     Route: 048
     Dates: start: 20180607

REACTIONS (2)
  - Abdominal distension [Unknown]
  - Fatigue [Unknown]

NARRATIVE: CASE EVENT DATE: 20180725
